FAERS Safety Report 9063118 (Version 1)
Quarter: 2013Q1

REPORT INFORMATION
  Report Type: Spontaneous
  Country: US (occurrence: US)
  Receive Date: 20130213
  Receipt Date: 20130213
  Transmission Date: 20140127
  Serious: Yes (Other)
  Sender: FDA-Public Use
  Company Number: US-JNJFOC-20130200369

PATIENT
  Age: 16 None
  Sex: Male
  Weight: 92.99 kg

DRUGS (5)
  1. REMICADE [Suspect]
     Indication: CROHN^S DISEASE
     Dosage: 12TH INFUSION
     Route: 042
     Dates: start: 20130128
  2. REMICADE [Suspect]
     Indication: CROHN^S DISEASE
     Route: 042
     Dates: start: 2011
  3. BENADRYL [Concomitant]
     Indication: PREMEDICATION
     Route: 065
  4. SOLU MEDROL [Concomitant]
     Indication: PREMEDICATION
     Route: 065
  5. ACETAMINOPHEN [Concomitant]
     Indication: PREMEDICATION
     Route: 065

REACTIONS (10)
  - Dyspnoea [Recovered/Resolved]
  - Blood pressure decreased [Recovered/Resolved]
  - Oxygen saturation decreased [Recovered/Resolved]
  - Erythema [Recovered/Resolved]
  - Infusion related reaction [Unknown]
  - Crohn^s disease [Not Recovered/Not Resolved]
  - Herpes zoster [Unknown]
  - Lip swelling [Unknown]
  - Hyperhidrosis [Recovered/Resolved]
  - Vomiting [Unknown]
